FAERS Safety Report 4297597-1 (Version None)
Quarter: 2004Q1

REPORT INFORMATION
  Report Type: 
  Country: None (occurrence: None)
  Receive Date: 20040217
  Receipt Date: 20040217
  Transmission Date: 20041129
  Serious: Yes (Hospitalization)
  Sender: FDA-Public Use
  Company Number: None

PATIENT
  Sex: Male

DRUGS (2)
  1. PROTONIX [Suspect]
     Indication: ABDOMINAL PAIN
     Dosage: 40 MG QD
     Dates: start: 20031001, end: 20040203
  2. PROTONIX [Suspect]
     Indication: GASTRITIS
     Dosage: 40 MG QD
     Dates: start: 20031001, end: 20040203

REACTIONS (2)
  - ACUTE GENERALISED EXANTHEMATOUS PUSTULOSIS [None]
  - SKIN CANDIDA [None]
